FAERS Safety Report 19891066 (Version 1)
Quarter: 2021Q3

REPORT INFORMATION
  Report Type: Spontaneous
  Country: US (occurrence: US)
  Receive Date: 20210927
  Receipt Date: 20210927
  Transmission Date: 20211014
  Serious: No
  Sender: FDA-Public Use
  Company Number: US-009507513-2109USA002653

PATIENT
  Age: 67 Year
  Sex: Female

DRUGS (1)
  1. KEYTRUDA [Suspect]
     Active Substance: PEMBROLIZUMAB
     Indication: GASTRIC CANCER
     Dosage: STRENGTH: 100MG/4ML; 200 MILLIGRAM, EVERY 3 WEEKS
     Route: 042
     Dates: start: 20200915

REACTIONS (4)
  - No adverse event [Unknown]
  - Product container issue [Unknown]
  - Poor quality product administered [Unknown]
  - Product preparation issue [Unknown]

NARRATIVE: CASE EVENT DATE: 20210909
